FAERS Safety Report 20336123 (Version 1)
Quarter: 2022Q1

REPORT INFORMATION
  Report Type: Spontaneous
  Country: US (occurrence: None)
  Receive Date: 20220114
  Receipt Date: 20220114
  Transmission Date: 20220423
  Serious: Yes (Other)
  Sender: FDA-Public Use
  Company Number: None

PATIENT
  Age: 70 Year
  Sex: Male
  Weight: 115.65 kg

DRUGS (1)
  1. SOTROVIMAB [Suspect]
     Active Substance: SOTROVIMAB
     Route: 042

REACTIONS (4)
  - Urticaria [None]
  - Nausea [None]
  - Diarrhoea [None]
  - Night sweats [None]

NARRATIVE: CASE EVENT DATE: 20220114
